FAERS Safety Report 6982127-3 (Version None)
Quarter: 2010Q3

REPORT INFORMATION
  Report Type: 
  Country: None (occurrence: None)
  Receive Date: 20100914
  Receipt Date: 20091110
  Transmission Date: 20110219
  Serious: No
  Sender: FDA-Public Use
  Company Number: US-PFIZER INC-2009296910

PATIENT
  Sex: Female
  Weight: 68 kg

DRUGS (35)
  1. LYRICA [Suspect]
     Indication: FIBROMYALGIA
     Dosage: UNK
     Dates: start: 20090801, end: 20090801
  2. ALBUTEROL [Concomitant]
     Dosage: UNK
  3. ACETYLSALICYLIC ACID [Concomitant]
     Dosage: UNK
  4. ASTELIN [Concomitant]
     Dosage: UNK
  5. BUMEX [Concomitant]
     Dosage: UNK
  6. CERTOLIZUMAB [Concomitant]
     Dosage: UNK
  7. CYANOCOBALAMIN [Concomitant]
     Dosage: UNK
  8. FOLIC ACID [Concomitant]
     Dosage: UNK
  9. LEFLUNOMIDE [Concomitant]
     Dosage: UNK
  10. METHADONE [Concomitant]
     Dosage: UNK
  11. METHOTREXATE [Concomitant]
     Dosage: UNK
  12. METOPROLOL [Concomitant]
     Dosage: UNK
  13. NITROGLYCERIN [Concomitant]
     Dosage: UNK
  14. NYSTATIN [Concomitant]
     Dosage: UNK
  15. POLYETHYLENE GLYCOL [Concomitant]
     Dosage: UNK
  16. PRAVASTATIN [Concomitant]
     Dosage: UNK
  17. PREDNISONE [Concomitant]
     Dosage: UNK
  18. RISPERIDONE [Concomitant]
     Dosage: UNK
  19. SPIRONOLACTONE [Concomitant]
     Dosage: UNK
  20. VITAMIN D [Concomitant]
     Dosage: UNK
  21. AMBIEN [Concomitant]
     Dosage: UNK
  22. IBANDRONATE SODIUM [Concomitant]
     Dosage: UNK
  23. WELLBUTRIN [Concomitant]
     Dosage: UNK
  24. FIORICET [Concomitant]
     Dosage: UNK
  25. SPIRIVA [Concomitant]
     Dosage: UNK
  26. SOMA [Concomitant]
     Dosage: UNK
  27. EVISTA [Concomitant]
     Dosage: UNK
  28. PLAQUENIL [Concomitant]
     Dosage: UNK
  29. LIDODERM [Concomitant]
     Dosage: UNK
  30. NEXIUM [Concomitant]
     Dosage: UNK
  31. PLAVIX [Concomitant]
     Dosage: UNK
  32. MONTELUKAST SODIUM [Concomitant]
     Dosage: UNK
  33. TRICOR [Concomitant]
     Dosage: UNK
  34. XOPENEX [Concomitant]
     Dosage: UNK
  35. ZETIA [Concomitant]
     Dosage: UNK

REACTIONS (3)
  - MALAISE [None]
  - NAUSEA [None]
  - PAIN [None]
